FAERS Safety Report 4572257-8 (Version None)
Quarter: 2005Q1

REPORT INFORMATION
  Report Type: 
  Country: None (occurrence: None)
  Receive Date: 20050203
  Receipt Date: 20050125
  Transmission Date: 20050727
  Serious: Yes (Hospitalization)
  Sender: FDA-Public Use
  Company Number: 200510203GDS

PATIENT
  Age: 42 Year
  Sex: Male

DRUGS (1)
  1. ASPIRIN [Suspect]
     Indication: HEADACHE
     Dosage: 500 MG, TOTAL DAILY, ORAL
     Route: 048
     Dates: start: 20041128

REACTIONS (3)
  - DUODENAL ULCER [None]
  - GASTRIC HAEMORRHAGE [None]
  - OESOPHAGITIS [None]
